FAERS Safety Report 5112792-7 (Version None)
Quarter: 2006Q3

REPORT INFORMATION
  Report Type: 
  Country: None (occurrence: None)
  Receive Date: 20060802
  Receipt Date: 20060427
  Transmission Date: 20061208
  Serious: No
  Sender: FDA-Public Use
  Company Number: 200610009US

PATIENT
  Age: 43 Year
  Sex: Female
  Weight: 90.9 kg

DRUGS (2)
  1. KETEK [Suspect]
     Indication: EAR INFECTION
     Dosage: 800 MG QD PO
     Route: 048
     Dates: start: 20051229, end: 20051230
  2. KETEK [Suspect]
     Indication: SINUSITIS
     Dosage: 800 MG QD PO
     Route: 048
     Dates: start: 20051229, end: 20051230

REACTIONS (10)
  - ASTHENOPIA [None]
  - COLD SWEAT [None]
  - EYE IRRITATION [None]
  - EYE PAIN [None]
  - FLUSHING [None]
  - GASTROINTESTINAL DISORDER [None]
  - HEADACHE [None]
  - HYPERHIDROSIS [None]
  - HYPERTENSION [None]
  - VISION BLURRED [None]
